FAERS Safety Report 4382714-5 (Version None)
Quarter: 2004Q2

REPORT INFORMATION
  Report Type: 
  Country: None (occurrence: None)
  Receive Date: 20040616
  Receipt Date: 20040607
  Transmission Date: 20050107
  Serious: Yes (Life-Threatening)
  Sender: FDA-Public Use
  Company Number: HQWYE876113MAY04

PATIENT
  Age: 30 Year
  Sex: Female
  Weight: 59.47 kg

DRUGS (5)
  1. EFFEXOR XR [Suspect]
     Indication: ANXIETY
     Dosage: ORAL  : 75 MG 1X PER 1 DAY ORAL
     Route: 048
     Dates: start: 20040106, end: 20040301
  2. EFFEXOR XR [Suspect]
     Indication: ANXIETY
     Dosage: ORAL  : 75 MG 1X PER 1 DAY ORAL
     Route: 048
     Dates: start: 20040301, end: 20040507
  3. ORTHO-NOVUM 7/7/7-28 [Concomitant]
  4. XAXAN (ALPRAZOLAM) [Concomitant]
  5. VICODIN [Concomitant]

REACTIONS (17)
  - ANXIETY [None]
  - BLOOD PRESSURE INCREASED [None]
  - DIARRHOEA [None]
  - DIZZINESS [None]
  - DRUG WITHDRAWAL SYNDROME [None]
  - FLANK PAIN [None]
  - GRAND MAL CONVULSION [None]
  - HAEMATURIA [None]
  - HEART RATE INCREASED [None]
  - HYPERVENTILATION [None]
  - LOSS OF CONSCIOUSNESS [None]
  - NAUSEA [None]
  - NEPHROLITHIASIS [None]
  - PELVIC PAIN [None]
  - SINUS TACHYCARDIA [None]
  - TONIC CLONIC MOVEMENTS [None]
  - VOMITING [None]
